FAERS Safety Report 14498184 (Version 1)
Quarter: 2018Q1

REPORT INFORMATION
  Report Type: Spontaneous
  Country: US (occurrence: US)
  Receive Date: 20180206
  Receipt Date: 20180206
  Transmission Date: 20180509
  Serious: Yes (Other)
  Sender: FDA-Public Use
  Company Number: None

PATIENT
  Age: 49 Year
  Sex: Male

DRUGS (1)
  1. TAMIFLU [Suspect]
     Active Substance: OSELTAMIVIR PHOSPHATE
     Indication: INFLUENZA
     Dates: start: 20180130, end: 20180130

REACTIONS (8)
  - Breath sounds abnormal [None]
  - Drug ineffective [None]
  - Pneumothorax [None]
  - Stridor [None]
  - Dyspnoea [None]
  - Speech disorder [None]
  - Tracheal deviation [None]
  - Aphonia [None]

NARRATIVE: CASE EVENT DATE: 20180130
